FAERS Safety Report 14581138 (Version 3)
Quarter: 2020Q3

REPORT INFORMATION
  Report Type: Spontaneous
  Country: US (occurrence: US)
  Receive Date: 20180228
  Receipt Date: 20200826
  Transmission Date: 20201102
  Serious: No
  Sender: FDA-Public Use
  Company Number: US-PFIZER INC-2018081697

PATIENT
  Age: 60 Year
  Sex: Male

DRUGS (2)
  1. EUCRISA [Suspect]
     Active Substance: CRISABOROLE
     Indication: XEROSIS
     Dosage: UNK, 1X/DAY (APPLY TO AFFECTED AREA)
     Route: 061
  2. EUCRISA [Suspect]
     Active Substance: CRISABOROLE
     Dosage: UNK (APPLY ONCE TO TWICE A DAY TO AFFECTED AREAS)
     Dates: start: 201803

REACTIONS (3)
  - Off label use [Unknown]
  - Application site pain [Recovered/Resolved]
  - Product use in unapproved indication [Unknown]
